FAERS Safety Report 7291556-2 (Version None)
Quarter: 2011Q1

REPORT INFORMATION
  Report Type: 
  Country: None (occurrence: None)
  Receive Date: 20110201
  Receipt Date: 20110118
  Transmission Date: 20110831
  Serious: Yes (Other)
  Sender: FDA-Public Use
  Company Number: 2010-4482

PATIENT
  Age: 57 Year
  Sex: Male

DRUGS (10)
  1. SINEMET [Concomitant]
  2. AMANTADINE HCL [Suspect]
     Indication: PARKINSON'S DISEASE
     Dosage: 200 MG (100 MG, 2 IN 1 D), ORAL
     Route: 048
  3. CLONAZEPAM [Concomitant]
  4. ADALAT [Concomitant]
  5. ANTIHISTAMINES [Concomitant]
  6. APO-GO (APOMORPHINE HYDROCHLORIDE) [Suspect]
     Indication: PARKINSON'S DISEASE
     Dosage: 6.5 MG/HR DURING DAY, 3.5MG/HR DURING NIGHT, SUBCUTANEOUS; 3MG/HR DURING DAY, 1MG/HR DURING NIGHT,
     Route: 058
     Dates: start: 20100714
  7. APO-GO (APOMORPHINE HYDROCHLORIDE) [Suspect]
     Indication: PARKINSON'S DISEASE
     Dosage: 6.5 MG/HR DURING DAY, 3.5MG/HR DURING NIGHT, SUBCUTANEOUS; 3MG/HR DURING DAY, 1MG/HR DURING NIGHT,
     Route: 058
     Dates: start: 20101201
  8. ATORVASTATIN [Concomitant]
  9. ANALGESICS [Concomitant]
  10. APO-GO PEN (APO-GO) (APOMORPHINE HYDROCHLORIDE) (APOMORPHINE HYDROCHLO [Suspect]
     Indication: PARKINSON'S DISEASE
     Dosage: 2 MG TID (2 MG, 3 IN 1 D), SUBCUTANEOUS
     Route: 058

REACTIONS (4)
  - LOWER RESPIRATORY TRACT INFECTION [None]
  - HALLUCINATION, VISUAL [None]
  - CONDITION AGGRAVATED [None]
  - AGGRESSION [None]
